FAERS Safety Report 23141647 (Version 1)
Quarter: 2023Q4

REPORT INFORMATION
  Report Type: Spontaneous
  Country: CN (occurrence: CN)
  Receive Date: 20231103
  Receipt Date: 20231103
  Transmission Date: 20240109
  Serious: Yes (Other)
  Sender: FDA-Public Use
  Company Number: None

PATIENT
  Age: 30 Year
  Sex: Female
  Weight: 63 kg

DRUGS (12)
  1. CYCLOPHOSPHAMIDE [Suspect]
     Active Substance: CYCLOPHOSPHAMIDE
     Indication: Gestational trophoblastic tumour
     Dosage: 0.978 G, ONE TIME IN ONE DAY, DILUTED WITH 0.9% SODIUM CHLORIDE (100 ML), AS A PART OF FIFTH EMA-CO
     Route: 041
     Dates: start: 20230930, end: 20230930
  2. CYCLOPHOSPHAMIDE [Suspect]
     Active Substance: CYCLOPHOSPHAMIDE
     Indication: Neoplasm malignant
  3. SODIUM CHLORIDE [Suspect]
     Active Substance: SODIUM CHLORIDE
     Indication: Medication dilution
     Dosage: 100 ML, USED TO DILUTE CYCLOPHOSPHAMIDE(0.978 G), INJECTION, START TIME:16:57 HR
     Route: 041
     Dates: start: 20230930, end: 20230930
  4. DEXTROSE [Suspect]
     Active Substance: DEXTROSE\DEXTROSE MONOHYDRATE
     Indication: Medication dilution
     Dosage: 500 ML, USED TO DILUTE VINDESINE SULFATE(4.89 MG)
     Route: 041
     Dates: start: 20230930, end: 20230930
  5. ETOPOSIDE [Suspect]
     Active Substance: ETOPOSIDE
     Indication: Gestational trophoblastic tumour
     Dosage: UNK, AS A PART OF FIFTH EMA-CO CHEMOTHERAPY (PART CO)
     Route: 065
     Dates: start: 20230930
  6. ETOPOSIDE [Suspect]
     Active Substance: ETOPOSIDE
     Indication: Neoplasm malignant
  7. METHOTREXATE [Suspect]
     Active Substance: METHOTREXATE
     Indication: Gestational trophoblastic tumour
     Dosage: UNK, AS A PART OF FIFTH EMA-CO CHEMOTHERAPY (PART CO)
     Route: 065
     Dates: start: 20230930
  8. METHOTREXATE [Suspect]
     Active Substance: METHOTREXATE
     Indication: Neoplasm malignant
  9. DACTINOMYCIN [Suspect]
     Active Substance: DACTINOMYCIN
     Indication: Gestational trophoblastic tumour
     Dosage: UNK, AS A PART OF FIFTH EMA-CO CHEMOTHERAPY (PART CO)
     Route: 065
     Dates: start: 20230930
  10. DACTINOMYCIN [Suspect]
     Active Substance: DACTINOMYCIN
     Indication: Neoplasm malignant
  11. VINDESINE SULFATE [Suspect]
     Active Substance: VINDESINE SULFATE
     Indication: Gestational trophoblastic tumour
     Dosage: 4.89 MG, ONE TIME IN ONE DAY, DILUTED WITH 5% GLUCOSE (500 ML), AS A PART OF FIFTH EMA-CO CHEMOTHERA
     Route: 041
     Dates: start: 20230930, end: 20230930
  12. VINDESINE SULFATE [Suspect]
     Active Substance: VINDESINE SULFATE
     Indication: Neoplasm malignant

REACTIONS (2)
  - White blood cell count decreased [Recovering/Resolving]
  - Platelet count decreased [Recovering/Resolving]

NARRATIVE: CASE EVENT DATE: 20231001
